FAERS Safety Report 5830947-0 (Version None)
Quarter: 2008Q3

REPORT INFORMATION
  Report Type: 
  Country: None (occurrence: None)
  Receive Date: 20080801
  Receipt Date: 20080219
  Transmission Date: 20090109
  Serious: No
  Sender: FDA-Public Use
  Company Number: US-BRISTOL-MYERS SQUIBB COMPANY-14082275

PATIENT
  Weight: 86 kg

DRUGS (4)
  1. WARFARIN SODIUM [Suspect]
     Indication: CAROTID ARTERY DISSECTION
     Dosage: ALSO TAKEN 7MG, ORAL FOR COUPLE OF DAYS. CURRENT DOSE 9MG, ORAL. RESTARTED ON 16-FEB-08
     Route: 048
  2. LOVENOX [Concomitant]
     Dates: end: 20080205
  3. VICODIN [Concomitant]
     Dates: end: 20080205
  4. AMBIEN [Concomitant]
     Dates: end: 20080205

REACTIONS (1)
  - TINNITUS [None]
